FAERS Safety Report 4621388-2 (Version None)
Quarter: 2005Q1

REPORT INFORMATION
  Report Type: 
  Country: None (occurrence: None)
  Receive Date: 20050323
  Receipt Date: 20050307
  Transmission Date: 20050727
  Serious: Yes (Other)
  Sender: FDA-Public Use
  Company Number: 602104

PATIENT
  Age: 64 Year
  Sex: Male

DRUGS (3)
  1. RECOMBINATE [Suspect]
     Indication: FACTOR VIII DEFICIENCY
     Dosage: PRN
     Dates: start: 20040503, end: 20040901
  2. RECOMBINATE [Suspect]
     Indication: RETINAL DETACHMENT
     Dosage: PRN
     Dates: start: 20040503, end: 20040901
  3. FLIXONASE [Concomitant]

REACTIONS (3)
  - FACTOR VIII INHIBITION [None]
  - HAEMORRHAGE [None]
  - RETINAL DETACHMENT [None]
